FAERS Safety Report 9227123 (Version 1)
Quarter: 2013Q2

REPORT INFORMATION
  Report Type: Spontaneous
  Country: US (occurrence: None)
  Receive Date: 20130410
  Receipt Date: 20130410
  Transmission Date: 20140414
  Serious: Yes (Hospitalization)
  Sender: FDA-Public Use
  Company Number: None

PATIENT
  Sex: Female
  Weight: 78.7 kg

DRUGS (1)
  1. DABIGATRAN [Suspect]
     Route: 048

REACTIONS (3)
  - Liver function test abnormal [None]
  - Iron overload [None]
  - Haematuria [None]
